FAERS Safety Report 9254777 (Version 1)
Quarter: 2013Q2

REPORT INFORMATION
  Report Type: Report from Study
  Country: BR (occurrence: BR)
  Receive Date: 20130425
  Receipt Date: 20130425
  Transmission Date: 20140414
  Serious: Yes (Other)
  Sender: FDA-Public Use
  Company Number: BR-ABBOTT-13P-020-1079729-00

PATIENT
  Age: 24 Year
  Sex: Female
  Weight: 88 kg

DRUGS (9)
  1. HUMIRA [Suspect]
     Indication: CROHN^S DISEASE
     Route: 058
     Dates: start: 20111003
  2. CARBOLITIUM [Concomitant]
     Indication: PRODUCT USED FOR UNKNOWN INDICATION
     Route: 048
     Dates: start: 2006
  3. CLOMIPRAMINE [Concomitant]
     Indication: ANTIDEPRESSANT THERAPY
     Dosage: 75 MG DAILY
     Route: 048
     Dates: start: 2010, end: 201303
  4. RIVOTRIL [Concomitant]
     Indication: RELAXATION THERAPY
     Dosage: 4 MG DAILY
     Route: 048
     Dates: start: 2006
  5. LYRICA [Concomitant]
     Indication: PAIN
     Route: 048
     Dates: start: 2011
  6. LYRICA [Concomitant]
     Indication: FIBROMYALGIA
  7. CYMBALTA [Concomitant]
     Indication: ANTIDEPRESSANT THERAPY
     Dosage: 60 MG DAILY
     Route: 048
     Dates: start: 2011, end: 201303
  8. CYMBALTA [Concomitant]
     Indication: PAIN
  9. RITALINA [Concomitant]
     Indication: ATTENTION DEFICIT/HYPERACTIVITY DISORDER
     Route: 048
     Dates: start: 201304

REACTIONS (5)
  - Gallbladder necrosis [Recovered/Resolved]
  - Cholelithiasis [Recovered/Resolved]
  - Diarrhoea [Not Recovered/Not Resolved]
  - Gastrointestinal pain [Not Recovered/Not Resolved]
  - Postoperative wound infection [Recovered/Resolved]
